FAERS Safety Report 10518240 (Version 1)
Quarter: 2014Q4

REPORT INFORMATION
  Report Type: Spontaneous
  Country: US (occurrence: None)
  Receive Date: 20141008
  Receipt Date: 20141008
  Transmission Date: 20150528
  Serious: Yes (Other)
  Sender: FDA-Public Use
  Company Number: 109980T

PATIENT
  Age: 50 Year
  Sex: Female
  Weight: 45.36 kg

DRUGS (1)
  1. MENTHOL 5% [Suspect]
     Active Substance: MENTHOL
     Indication: PAIN
     Route: 061
     Dates: start: 20140923

REACTIONS (3)
  - Application site pain [None]
  - Erythema [None]
  - Blister [None]

NARRATIVE: CASE EVENT DATE: 20140923
